FAERS Safety Report 4781682-1 (Version None)
Quarter: 2005Q3

REPORT INFORMATION
  Report Type: 
  Country: None (occurrence: None)
  Receive Date: 20050927
  Receipt Date: 20050912
  Transmission Date: 20060218
  Serious: Yes (Hospitalization)
  Sender: FDA-Public Use
  Company Number: FR_050907097

PATIENT
  Age: 26 Year
  Sex: Male
  Weight: 70 kg

DRUGS (5)
  1. CAPASTAT SULFATE [Suspect]
     Indication: TUBERCULOSIS
     Dosage: 1 G/3 DAY
     Dates: start: 20050201
  2. ZYVOX [Concomitant]
  3. DEXAMBUTOL (ETHAMBUTOL DIHYDROCHLORIDE) [Concomitant]
  4. PARA-AMINOSALICYLATE ACID POWDER [Concomitant]
  5. ZOPHREN (ONDANSETRON HYDROCHLORIDE) [Concomitant]

REACTIONS (8)
  - AMYLOIDOSIS [None]
  - ANAEMIA [None]
  - ATRIOVENTRICULAR BLOCK SECOND DEGREE [None]
  - NAUSEA [None]
  - SINUS ARRHYTHMIA [None]
  - SYNCOPE [None]
  - VERTIGO [None]
  - VOMITING [None]
